FAERS Safety Report 15490772 (Version 1)
Quarter: 2018Q4

REPORT INFORMATION
  Report Type: Spontaneous
  Country: GB (occurrence: GB)
  Receive Date: 20181011
  Receipt Date: 20181011
  Transmission Date: 20190205
  Serious: Yes (Other)
  Sender: FDA-Public Use
  Company Number: GB-NOVOPROD-626232

PATIENT
  Age: 88 Year
  Sex: Female

DRUGS (5)
  1. TRESIBA [Concomitant]
     Active Substance: INSULIN DEGLUDEC
     Indication: TYPE 1 DIABETES MELLITUS
     Dosage: 9 U, QD
     Route: 058
     Dates: start: 20180530
  2. CLOPIDOGREL [Concomitant]
     Active Substance: CLOPIDOGREL BISULFATE
     Dosage: 75 MG, QD
     Route: 048
     Dates: start: 20180720
  3. LEVOTHYROXINE. [Concomitant]
     Active Substance: LEVOTHYROXINE
     Dosage: 100 ?G, QD
     Route: 048
  4. FELODIPINE. [Concomitant]
     Active Substance: FELODIPINE
     Dosage: 2.5 MG INCREASED TO 5 MG
     Route: 048
     Dates: start: 20180720
  5. NOVORAPID [Suspect]
     Active Substance: INSULIN ASPART
     Indication: TYPE 1 DIABETES MELLITUS
     Dosage: UNK
     Route: 058

REACTIONS (4)
  - Lacunar infarction [Unknown]
  - Hypoglycaemic unconsciousness [Unknown]
  - Cerebral small vessel ischaemic disease [Unknown]
  - Hypoglycaemia unawareness [Unknown]
